FAERS Safety Report 11262148 (Version 3)
Quarter: 2015Q3

REPORT INFORMATION
  Report Type: Spontaneous
  Country: US (occurrence: US)
  Receive Date: 20150710
  Receipt Date: 20150805
  Transmission Date: 20151125
  Serious: Yes (Death, Hospitalization)
  Sender: FDA-Public Use
  Company Number: US-UNITED THERAPEUTICS-UNT-2015-008088

PATIENT
  Age: 82 Year
  Sex: Female
  Weight: 64.4 kg

DRUGS (2)
  1. TYVASO [Suspect]
     Active Substance: TREPROSTINIL
     Indication: PULMONARY ARTERIAL HYPERTENSION
     Dosage: 18-54 MICROGRAMS , QID
     Dates: start: 20150617
  2. ORENITRAM [Suspect]
     Active Substance: TREPROSTINIL
     Indication: PULMONARY ARTERIAL HYPERTENSION
     Dosage: 1.125 MG, TID
     Route: 048
     Dates: start: 20150220, end: 20150713

REACTIONS (7)
  - Dysentery [Fatal]
  - Pain in jaw [Fatal]
  - Retching [Fatal]
  - Nausea [Fatal]
  - Pulmonary arterial hypertension [Fatal]
  - Therapeutic procedure [Unknown]
  - Headache [Fatal]

NARRATIVE: CASE EVENT DATE: 201506
